FAERS Safety Report 7413617-7 (Version None)
Quarter: 2011Q2

REPORT INFORMATION
  Report Type: 
  Country: None (occurrence: None)
  Receive Date: 20110413
  Receipt Date: 20110404
  Transmission Date: 20111010
  Serious: Yes (Other)
  Sender: FDA-Public Use
  Company Number: AT-CEPHALON-2011001636

PATIENT
  Sex: Female

DRUGS (2)
  1. FENTANYL [Concomitant]
     Indication: CANCER PAIN
     Route: 062
  2. FENTANYL CITRATE [Suspect]
     Indication: BREAKTHROUGH PAIN
     Route: 002
     Dates: start: 20100126

REACTIONS (2)
  - SEPSIS [None]
  - DRUG PRESCRIBING ERROR [None]
